FAERS Safety Report 12315672 (Version 2)
Quarter: 2016Q3

REPORT INFORMATION
  Report Type: Spontaneous
  Country: LB (occurrence: LB)
  Receive Date: 20160428
  Receipt Date: 20160811
  Transmission Date: 20161109
  Serious: Yes (Hospitalization, Other)
  Sender: FDA-Public Use
  Company Number: LB-ARBOR PHARMACEUTICALS, LLC-LB-2016ARB000304

PATIENT
  Age: 30 Year
  Sex: Female

DRUGS (1)
  1. LAMOTRIGINE. [Suspect]
     Active Substance: LAMOTRIGINE
     Indication: SOMATIC SYMPTOM DISORDER
     Dosage: 50 MG/DAY

REACTIONS (24)
  - Pyrexia [Recovered/Resolved]
  - Transaminases increased [Recovered/Resolved]
  - Blood osmolarity decreased [Unknown]
  - CD30 expression [Recovered/Resolved]
  - Rash pruritic [Recovered/Resolved]
  - Red blood cell sedimentation rate increased [Recovered/Resolved]
  - Lymphocyte morphology abnormal [Recovered/Resolved]
  - Rash morbilliform [Recovered/Resolved]
  - Fatigue [Recovered/Resolved]
  - Pseudolymphoma [Recovered/Resolved]
  - Inappropriate antidiuretic hormone secretion [Unknown]
  - Lymphoid tissue hyperplasia [Recovered/Resolved]
  - Lymphadenopathy [Recovered/Resolved]
  - Urine osmolarity increased [Unknown]
  - Hyponatraemia [Recovered/Resolved]
  - Leukocytosis [Recovered/Resolved]
  - Face oedema [Recovered/Resolved]
  - Splenomegaly [Recovered/Resolved]
  - HLA marker study positive [Recovered/Resolved]
  - Drug reaction with eosinophilia and systemic symptoms [Recovered/Resolved]
  - Beta 2 microglobulin increased [Recovered/Resolved]
  - Human herpesvirus 6 infection [Recovered/Resolved]
  - Malaise [Recovered/Resolved]
  - Blood lactate dehydrogenase increased [Recovered/Resolved]
